FAERS Safety Report 9224504 (Version 1)
Quarter: 2012Q4

REPORT INFORMATION
  Report Type: Spontaneous
  Country: US (occurrence: None)
  Receive Date: 20120917
  Receipt Date: 20120917
  Transmission Date: 20130627
  Serious: No
  Sender: FDA-Public Use
  Company Number: HRA-CDB20120235

PATIENT
  Sex: Female

DRUGS (1)
  1. ELLA [Suspect]
     Route: 048
     Dates: start: 20120409

REACTIONS (1)
  - Menorrhagia [None]
